FAERS Safety Report 15269410 (Version 1)
Quarter: 2018Q3

REPORT INFORMATION
  Report Type: Spontaneous
  Country: FR (occurrence: FR)
  Receive Date: 20180813
  Receipt Date: 20180813
  Transmission Date: 20181010
  Serious: Yes (Hospitalization)
  Sender: FDA-Public Use
  Company Number: FR-TEVA-2018-FR-939751

PATIENT
  Age: 87 Year
  Sex: Female
  Weight: 65 kg

DRUGS (13)
  1. CLOPIDOGREL [Suspect]
     Active Substance: CLOPIDOGREL BISULFATE
     Route: 048
     Dates: start: 2017
  2. FLUTICASONE. [Concomitant]
     Active Substance: FLUTICASONE
     Indication: BRONCHITIS CHRONIC
     Dosage: 50 MICROGRAM DAILY;
     Route: 048
     Dates: start: 2016
  3. RAMIPRIL. [Concomitant]
     Active Substance: RAMIPRIL
     Indication: HYPERTENSION
     Dosage: 5 MILLIGRAM DAILY;
     Route: 048
     Dates: start: 2017
  4. LEVOCETIRIZINE [Concomitant]
     Active Substance: LEVOCETIRIZINE
     Dosage: 5 MICROGRAM DAILY;
     Route: 048
     Dates: start: 2017
  5. LYSINE ASPIRIN [Concomitant]
     Active Substance: ASPIRIN DL-LYSINE
     Indication: THROMBOSIS
     Route: 048
     Dates: start: 2016
  6. CLOPIDOGREL [Suspect]
     Active Substance: CLOPIDOGREL BISULFATE
     Dosage: 75 MILLIGRAM DAILY;
     Route: 048
     Dates: start: 20170705
  7. PRAVASTATIN. [Concomitant]
     Active Substance: PRAVASTATIN
     Dosage: 20 MILLIGRAM DAILY;
     Route: 048
     Dates: start: 2016
  8. SALMETEROL [Concomitant]
     Active Substance: SALMETEROL
     Indication: BRONCHITIS CHRONIC
     Dosage: 500 MILLIGRAM DAILY;
     Route: 048
     Dates: start: 2016
  9. FINASTERIDE. [Concomitant]
     Active Substance: FINASTERIDE
     Indication: BENIGN PROSTATIC HYPERPLASIA
     Dosage: 5 MILLIGRAM DAILY;
     Route: 048
     Dates: start: 2017
  10. SALMETEROL [Concomitant]
     Active Substance: SALMETEROL
     Indication: THROMBOSIS
     Dosage: 20 MILLIGRAM DAILY;
     Route: 048
     Dates: start: 2017
  11. MOMETASONE [Concomitant]
     Active Substance: MOMETASONE
     Indication: BRONCHITIS CHRONIC
     Dosage: 50 MICROGRAM DAILY;
     Route: 048
     Dates: start: 2017
  12. NEBIVOLOL. [Concomitant]
     Active Substance: NEBIVOLOL
     Indication: HYPERTENSION
     Dosage: 2.5 MILLIGRAM DAILY;
     Route: 048
     Dates: start: 2017
  13. ESOMEPRAZOLE [Concomitant]
     Active Substance: ESOMEPRAZOLE
     Indication: HYPERCHLORHYDRIA
     Dosage: 20 MILLIGRAM DAILY;
     Route: 048
     Dates: start: 2017

REACTIONS (3)
  - Chest pain [Recovered/Resolved]
  - Acute pulmonary oedema [Recovered/Resolved]
  - Dyspnoea [Recovered/Resolved]

NARRATIVE: CASE EVENT DATE: 20170728
